FAERS Safety Report 19481860 (Version 1)
Quarter: 2021Q3

REPORT INFORMATION
  Report Type: Spontaneous
  Country: DE (occurrence: DE)
  Receive Date: 20210701
  Receipt Date: 20210701
  Transmission Date: 20211014
  Serious: Yes (Hospitalization)
  Sender: FDA-Public Use
  Company Number: DE-ACCORD-230061

PATIENT
  Age: 76 Year
  Sex: Female

DRUGS (10)
  1. PANTOPRAZOLE [Concomitant]
     Active Substance: PANTOPRAZOLE
     Dosage: 20 MG, 2?0?0?0, TABLETS
  2. APIXABAN [Suspect]
     Active Substance: APIXABAN
     Indication: PRODUCT USED FOR UNKNOWN INDICATION
     Dosage: 5 MG, 1?0?1?0, TABLETS
  3. URBASON [Concomitant]
     Active Substance: METHYLPREDNISOLONE
     Dosage: 16 MG, 0.5?0?0?0, TABLET
  4. URBASON [Concomitant]
     Active Substance: METHYLPREDNISOLONE
     Dosage: 16 MG, 1?0?0.5?0, TABLETS
  5. TORASEMIDE [Concomitant]
     Active Substance: TORSEMIDE
     Dosage: 10 MG, 1?0?0?0, TABLET
  6. VERAPAMIL [Concomitant]
     Active Substance: VERAPAMIL HYDROCHLORIDE
     Dosage: 40 MG, 1?0?1?0, TABLETS
  7. ROFLUMILAST. [Concomitant]
     Active Substance: ROFLUMILAST
     Dosage: 250 MICROGRAM, 1?0?0?0, TABLET
  8. CLOPIDOGREL [Suspect]
     Active Substance: CLOPIDOGREL BISULFATE
     Indication: PRODUCT USED FOR UNKNOWN INDICATION
     Dosage: 75 MG, 1?0?0?0, TABLET
  9. ULTIBRO BREEZHALER [Concomitant]
     Active Substance: GLYCOPYRRONIUM\INDACATEROL
     Dosage: 1?0?0?0, METERED DOSE INHALER?85 MICROGRAMS / 43 MICROGRAMS
  10. URBASON [Concomitant]
     Active Substance: METHYLPREDNISOLONE
     Dosage: 16 MG, 1?0?0?0, TABLET

REACTIONS (2)
  - Abdominal pain upper [Recovering/Resolving]
  - Haematochezia [Recovering/Resolving]
